FAERS Safety Report 20977143 (Version 5)
Quarter: 2022Q3

REPORT INFORMATION
  Report Type: Report from Study
  Country: GB (occurrence: GB)
  Receive Date: 20220617
  Receipt Date: 20220907
  Transmission Date: 20221027
  Serious: Yes (Hospitalization)
  Sender: FDA-Public Use
  Company Number: GB-G1 THERAPEUTICS-2022G1GB0000135

PATIENT
  Age: 28 Year
  Sex: Male
  Weight: 92.7 kg

DRUGS (25)
  1. TRILACICLIB [Suspect]
     Active Substance: TRILACICLIB
     Indication: Myelosuppression
     Dosage: 240 MG/M2 (540 MG) DAY 1 AND DAY 2 OF EACH CYCLE
     Route: 041
     Dates: start: 20220117, end: 20220118
  2. TRILACICLIB [Suspect]
     Active Substance: TRILACICLIB
     Dosage: 240 MG/M2 (525 MG) DAY 1 AND DAY 2 OF EACH CYCLE
     Route: 041
     Dates: start: 20220202, end: 20220609
  3. TRILACICLIB [Suspect]
     Active Substance: TRILACICLIB
     Dosage: 240 MG/M2 (525) ON DAY 1 AND DAY 2 OF EACH CYCLE
     Route: 041
     Dates: start: 20220622
  4. BEVACIZUMAB [Suspect]
     Active Substance: BEVACIZUMAB
     Indication: Colon cancer metastatic
     Dosage: 5 MG/KG (500 MG) DAY 1 OF EACH 14 DAY CYCLE
     Route: 041
     Dates: start: 20220117, end: 20220117
  5. BEVACIZUMAB [Suspect]
     Active Substance: BEVACIZUMAB
     Dosage: 5 MG/KG  (475 MG) DAY 1 OF EACH 14 DAY CYCLE
     Route: 041
     Dates: start: 20220202, end: 20220608
  6. BEVACIZUMAB [Suspect]
     Active Substance: BEVACIZUMAB
     Dosage: 5 MG/KG (475 MILLIGRAM) ON DAY 1 OF EACH CYCLE
     Route: 041
     Dates: start: 20220622
  7. IRINOTECAN [Suspect]
     Active Substance: IRINOTECAN
     Indication: Colon cancer metastatic
     Dosage: 165 MG/M2 (370 MG) ON DAY 1 OF EACH CYCLE
     Route: 041
     Dates: start: 20220117, end: 20220117
  8. IRINOTECAN [Suspect]
     Active Substance: IRINOTECAN
     Dosage: 165 MG/M2 (360 MG) ON DAY 1 OF EACH CYCLE
     Route: 041
     Dates: start: 20220202, end: 20220608
  9. IRINOTECAN [Suspect]
     Active Substance: IRINOTECAN
     Dosage: 165 MG/M2 (360 MILLIGRAM) ON DAY 1 OF EACH CYCLE
     Route: 041
     Dates: start: 20220622
  10. LEUCOVORIN [Suspect]
     Active Substance: LEUCOVORIN
     Indication: Colon cancer metastatic
     Dosage: 400 MG/M2 (900 MG) ON DAY 1 OF EACH CYCLE
     Route: 041
     Dates: start: 20220117, end: 20220117
  11. LEUCOVORIN [Suspect]
     Active Substance: LEUCOVORIN
     Dosage: 400 MG/M2 (870 MG) ON DAY 1 OF EACH CYCLE
     Route: 041
     Dates: start: 20220202, end: 20220622
  12. LEUCOVORIN [Suspect]
     Active Substance: LEUCOVORIN
     Dosage: 400 MG/M2 (870 MILLIGRAM) ON DAY 1 OF EACH CYCLE
     Route: 041
     Dates: start: 20220622
  13. OXALIPLATIN [Suspect]
     Active Substance: OXALIPLATIN
     Indication: Colon cancer metastatic
     Dosage: 85 MG/M2 (190 MG) ON DAY 1 OF EACH CYCLE
     Route: 041
     Dates: start: 20220117, end: 20220117
  14. OXALIPLATIN [Suspect]
     Active Substance: OXALIPLATIN
     Dosage: 85 MG/M2 (185 MG) ON DAY 1 OF EACH CYCLE
     Route: 041
     Dates: start: 20220202, end: 20220608
  15. OXALIPLATIN [Suspect]
     Active Substance: OXALIPLATIN
     Dosage: 85 MG/M2 (185 MILLIGRAM) ON DAY 1 OF EACH CYLCE
     Route: 041
     Dates: start: 20220622
  16. FLUOROURACIL [Suspect]
     Active Substance: FLUOROURACIL
     Indication: Colon cancer metastatic
     Dosage: 2400 MG/M2 (5400 MG) OVER 48 HOURS BY CONTINUOUS INFUSION STARTING ON DAY 1 OF EACH CYCLE
     Route: 041
     Dates: start: 20220117, end: 20220119
  17. FLUOROURACIL [Suspect]
     Active Substance: FLUOROURACIL
     Dosage: 2400 MG/M2 (5250 MG) OVER 48 HOURS BY CONTINUOUS INFUSION STARTING ON DAY 1 OF EACH CYCLE
     Route: 041
     Dates: start: 20220202, end: 20220527
  18. FLUOROURACIL [Suspect]
     Active Substance: FLUOROURACIL
     Dosage: 2400 MG/M2 (5250 MG) OVER 48 HOURS BY CONTINUOUS INFUSION STARTING ON DAY 1 OF EACH CYCLE
     Route: 041
     Dates: start: 20220609
  19. OMEPRAZOLE [Concomitant]
     Active Substance: OMEPRAZOLE
     Indication: Gastrooesophageal reflux disease
     Dosage: 20 MILLIGRAM, QD
     Route: 048
     Dates: start: 20220114
  20. METOCLOPRAMIDE [Concomitant]
     Active Substance: METOCLOPRAMIDE
     Indication: Nausea
     Dosage: 10 MILLIGRAM, QD
     Route: 048
     Dates: start: 20220117
  21. ONDANSETRON [Concomitant]
     Active Substance: ONDANSETRON
     Indication: Nausea
     Dosage: 8 MILLIGRAM, QD
     Route: 048
     Dates: start: 20220117
  22. ONDANSETRON [Concomitant]
     Active Substance: ONDANSETRON
     Indication: Vomiting
  23. DEXAMETHASONE [Concomitant]
     Active Substance: DEXAMETHASONE
     Indication: Nausea
     Dosage: 8 MILLIGRAM, QD
     Route: 048
     Dates: start: 20220117
  24. DALTEPARIN [Concomitant]
     Active Substance: DALTEPARIN
     Indication: Deep vein thrombosis
     Dosage: 10000 INTERNATIONAL UNIT, BID
     Route: 058
     Dates: start: 20220225
  25. DALTEPARIN [Concomitant]
     Active Substance: DALTEPARIN
     Indication: Vascular access complication

REACTIONS (1)
  - Vomiting [Recovered/Resolved]

NARRATIVE: CASE EVENT DATE: 20220608
